FAERS Safety Report 21418420 (Version 1)
Quarter: 2022Q4

REPORT INFORMATION
  Report Type: Report from Study
  Country: US (occurrence: None)
  Receive Date: 20221006
  Receipt Date: 20221006
  Transmission Date: 20230113
  Serious: Yes (Other)
  Sender: FDA-Public Use
  Company Number: 2022A334564

PATIENT
  Sex: Female

DRUGS (3)
  1. TAGRISSO [Interacting]
     Active Substance: OSIMERTINIB
     Indication: Lung neoplasm malignant
     Route: 048
     Dates: start: 20220331
  2. ZOLOFT [Interacting]
     Active Substance: SERTRALINE HYDROCHLORIDE
     Route: 065
  3. PAXIL [Interacting]
     Active Substance: PAROXETINE HYDROCHLORIDE
     Route: 065

REACTIONS (5)
  - Drug interaction [Unknown]
  - Electrocardiogram QT prolonged [Unknown]
  - Anxiety [Unknown]
  - Skin haemorrhage [Unknown]
  - Skin abrasion [Unknown]
